FAERS Safety Report 12012380 (Version 3)
Quarter: 2016Q2

REPORT INFORMATION
  Report Type: Report from Study
  Country: US (occurrence: US)
  Receive Date: 20160205
  Receipt Date: 20160523
  Transmission Date: 20160815
  Serious: Yes (Hospitalization)
  Sender: FDA-Public Use
  Company Number: US-JNJFOC-20160201818

PATIENT
  Age: 56 Year
  Sex: Female
  Weight: 61 kg

DRUGS (13)
  1. IMBRUVICA [Suspect]
     Active Substance: IBRUTINIB
     Indication: CHRONIC LYMPHOCYTIC LEUKAEMIA
     Route: 048
     Dates: start: 20151027, end: 20160109
  2. EXCEDRIN [Concomitant]
     Active Substance: ACETAMINOPHEN\ASPIRIN\CAFFEINE
  3. ASA [Concomitant]
     Active Substance: ASPIRIN
  4. ADVAIR HFA [Concomitant]
     Active Substance: FLUTICASONE PROPIONATE\SALMETEROL XINAFOATE
  5. PIROXICAM. [Concomitant]
     Active Substance: PIROXICAM
  6. ALBUTEROL. [Concomitant]
     Active Substance: ALBUTEROL
  7. PERCOCET [Concomitant]
     Active Substance: ACETAMINOPHEN\OXYCODONE HYDROCHLORIDE
  8. CLARITIN [Concomitant]
     Active Substance: LORATADINE
  9. IBUPROFEN. [Concomitant]
     Active Substance: IBUPROFEN
  10. THEOPHYLLINE [Concomitant]
     Active Substance: THEOPHYLLINE ANHYDROUS
  11. COMPAZINE [Concomitant]
     Active Substance: PROCHLORPERAZINE MALEATE
  12. VENTOLIN [Concomitant]
     Active Substance: ALBUTEROL SULFATE
  13. POTASSIUM [Concomitant]
     Active Substance: POTASSIUM

REACTIONS (2)
  - Mononeuropathy multiplex [Recovered/Resolved]
  - Insomnia [Unknown]

NARRATIVE: CASE EVENT DATE: 2016
